FAERS Safety Report 10156696 (Version 1)
Quarter: 2014Q2

REPORT INFORMATION
  Report Type: Spontaneous
  Country: US (occurrence: US)
  Receive Date: 20140507
  Receipt Date: 20140507
  Transmission Date: 20141212
  Serious: No
  Sender: FDA-Public Use
  Company Number: US-009507513-1405USA000146

PATIENT
  Age: 63 Year
  Sex: Female
  Weight: 62.13 kg

DRUGS (1)
  1. OXYTROL FOR WOMEN [Suspect]
     Indication: URINARY INCONTINENCE
     Dosage: 1 DF, Q4D
     Route: 062
     Dates: start: 201311

REACTIONS (2)
  - Drug effect decreased [Unknown]
  - Product adhesion issue [Unknown]
